FAERS Safety Report 8303995-9 (Version None)
Quarter: 2012Q2

REPORT INFORMATION
  Report Type: 
  Country: None (occurrence: None)
  Receive Date: 20120423
  Receipt Date: 20120417
  Transmission Date: 20120825
  Serious: Yes (Other)
  Sender: FDA-Public Use
  Company Number: US-PFIZER INC-2012095411

PATIENT
  Sex: Female
  Weight: 84.807 kg

DRUGS (4)
  1. NEURONTIN [Suspect]
     Indication: MIGRAINE
     Dosage: 100 MG, 3X/DAY
     Route: 048
     Dates: end: 20000101
  2. METHADONE [Concomitant]
     Indication: PAIN
     Dosage: UNK
  3. ZANAFLEX [Concomitant]
     Indication: SPINAL FUSION SURGERY
     Dosage: UNK
  4. SOMA [Concomitant]
     Dosage: UNK

REACTIONS (5)
  - NEUROPATHY PERIPHERAL [None]
  - HYPERTENSION [None]
  - SYSTEMIC LUPUS ERYTHEMATOSUS [None]
  - HEAD DISCOMFORT [None]
  - MALAISE [None]
